FAERS Safety Report 9895820 (Version 1)
Quarter: 2014Q1

REPORT INFORMATION
  Report Type: Spontaneous
  Country: US (occurrence: US)
  Receive Date: 20140213
  Receipt Date: 20140213
  Transmission Date: 20141002
  Serious: No
  Sender: FDA-Public Use
  Company Number: US-BRISTOL-MYERS SQUIBB COMPANY-17244120

PATIENT
  Age: 62 Year
  Sex: Female

DRUGS (4)
  1. ORENCIA [Suspect]
     Route: 042
  2. LYRICA [Concomitant]
  3. SYNTHROID [Concomitant]
  4. ATENOLOL [Concomitant]

REACTIONS (1)
  - Contusion [Unknown]
